FAERS Safety Report 8011296-1 (Version None)
Quarter: 2011Q4

REPORT INFORMATION
  Report Type: 
  Country: None (occurrence: None)
  Receive Date: 20111228
  Receipt Date: 20111221
  Transmission Date: 20120403
  Serious: Yes (Congenital Anomaly)
  Sender: FDA-Public Use
  Company Number: US-JNJFOC-20111104016

PATIENT
  Sex: Male

DRUGS (5)
  1. TOPAMAX [Suspect]
     Route: 064
     Dates: start: 20070401, end: 20080101
  2. CLINDAMYCIN [Concomitant]
     Indication: INFECTION
     Route: 065
  3. TOPAMAX [Suspect]
     Indication: FOETAL EXPOSURE DURING PREGNANCY
     Route: 064
     Dates: start: 20080617, end: 20080717
  4. ALDOMET [Concomitant]
     Indication: HYPERTENSION
     Route: 065
  5. HYDROCODONE [Concomitant]
     Indication: PAIN MANAGEMENT
     Route: 065

REACTIONS (3)
  - CLEFT PALATE [None]
  - EMOTIONAL DISTRESS [None]
  - CLEFT UVULA [None]
